FAERS Safety Report 5810129-9 (Version None)
Quarter: 2008Q3

REPORT INFORMATION
  Report Type: 
  Country: None (occurrence: None)
  Receive Date: 20080715
  Receipt Date: 20070720
  Transmission Date: 20090109
  Serious: No
  Sender: FDA-Public Use
  Company Number: A0661735A

PATIENT
  Sex: Female

DRUGS (2)
  1. IMITREX [Suspect]
     Indication: MIGRAINE
     Dosage: 100MG UNKNOWN
  2. IMITREX [Concomitant]
     Dosage: 20MG UNKNOWN

REACTIONS (3)
  - HYPERSENSITIVITY [None]
  - PAIN [None]
  - TENDERNESS [None]
